FAERS Safety Report 24136302 (Version 1)
Quarter: 2024Q3

REPORT INFORMATION
  Report Type: Spontaneous
  Country: US (occurrence: US)
  Receive Date: 20240725
  Receipt Date: 20240725
  Transmission Date: 20241017
  Serious: No
  Sender: BRISTOL MYERS SQUIBB
  Company Number: US-BRISTOL-MYERS SQUIBB COMPANY-2024-115388

PATIENT
  Age: 83 Year
  Sex: Female
  Weight: 48.99 kg

DRUGS (12)
  1. REVLIMID [Suspect]
     Active Substance: LENALIDOMIDE
     Indication: Myelodysplastic syndrome
     Dosage: FREQUENCY: 28 DAYS
     Route: 048
     Dates: start: 20240119
  2. ASPIRIN [Concomitant]
     Active Substance: ASPIRIN
     Indication: Product used for unknown indication
     Dosage: LOW-DOSE
  3. VITAMIN B12 [Concomitant]
     Active Substance: CYANOCOBALAMIN
     Indication: Product used for unknown indication
     Route: 048
  4. LEVOFLOXACIN [Concomitant]
     Active Substance: LEVOFLOXACIN
     Indication: Product used for unknown indication
  5. LEVOFLOXACIN [Concomitant]
     Active Substance: LEVOFLOXACIN
     Route: 048
  6. VITAMIN D3 [Concomitant]
     Active Substance: CHOLECALCIFEROL
     Indication: Product used for unknown indication
     Route: 048
  7. LISINOPRIL [Concomitant]
     Active Substance: LISINOPRIL
     Indication: Product used for unknown indication
     Route: 048
  8. LEVOTHYROXINE SODIUM [Concomitant]
     Active Substance: LEVOTHYROXINE SODIUM
     Indication: Product used for unknown indication
  9. ONDANSETRON HYDROCHLORIDE [Concomitant]
     Active Substance: ONDANSETRON HYDROCHLORIDE
     Indication: Product used for unknown indication
  10. OMEPRAZOLE DELAYED RELEASE [OMEPRAZOLE] [Concomitant]
     Indication: Product used for unknown indication
  11. DOXEPIN HYDROCHLORIDE [Concomitant]
     Active Substance: DOXEPIN HYDROCHLORIDE
     Indication: Product used for unknown indication
  12. COQ10 [ASCORBIC ACID;BETACAROTENE;CUPRIC OXIDE;MANGANESE SULFATE;SELEN [Concomitant]
     Indication: Product used for unknown indication

REACTIONS (1)
  - Headache [Unknown]

NARRATIVE: CASE EVENT DATE: 20240713
